FAERS Safety Report 8549874 (Version 5)
Quarter: 2013Q2

REPORT INFORMATION
  Report Type: Report from Study
  Country: US (occurrence: US)
  Receive Date: 20120507
  Receipt Date: 20130619
  Transmission Date: 20140414
  Serious: Yes (Hospitalization, Congenital Anomaly, Other)
  Sender: FDA-Public Use
  Company Number: PHHY2011US40165

PATIENT
  Age: 0 Year
  Sex: Male

DRUGS (4)
  1. RHUMAB-E25 [Suspect]
     Indication: ASTHMA
     Dosage: MATERNAL DOSE: 150 MG, Q4W
     Route: 064
     Dates: start: 20100618
  2. RHUMAB-E25 [Suspect]
     Dosage: 375 MG, UNK
     Route: 064
     Dates: start: 20110330
  3. MORPHINE SULFATE [Suspect]
     Indication: BACK PAIN
     Route: 064
  4. METHADONE HYDROCHLORIDE TABLETS USP [Suspect]
     Indication: BACK PAIN
     Route: 064

REACTIONS (8)
  - Feeding disorder neonatal [Unknown]
  - Drug withdrawal syndrome [Recovered/Resolved]
  - Underweight [Unknown]
  - Cryptorchism [Not Recovered/Not Resolved]
  - Reproductive tract hypoplasia, male [Not Recovered/Not Resolved]
  - Body height below normal [Not Recovered/Not Resolved]
  - Anaemia [Unknown]
  - Foetal exposure during pregnancy [Unknown]
